FAERS Safety Report 4689908-X (Version None)
Quarter: 2005Q2

REPORT INFORMATION
  Report Type: 
  Country: None (occurrence: None)
  Receive Date: 20050608
  Receipt Date: 20050106
  Transmission Date: 20051028
  Serious: No
  Sender: FDA-Public Use
  Company Number: 2004-BP-14291BP

PATIENT
  Age: 73 Year
  Sex: Male
  Weight: 74 kg

DRUGS (9)
  1. SPIRIVA [Suspect]
     Indication: CHRONIC OBSTRUCTIVE PULMONARY DISEASE
     Dosage: 18 MCG (18 MCG, 18 IN 1 D), IH
     Route: 055
     Dates: end: 20041121
  2. SPIRIVA [Suspect]
     Indication: EMPHYSEMA
     Dosage: 18 MCG (18 MCG, 18 IN 1 D), IH
     Route: 055
     Dates: end: 20041121
  3. DIGOXIN [Concomitant]
  4. COUMADIN [Concomitant]
  5. NORVASC [Concomitant]
  6. HYTRIN [Concomitant]
  7. PREVACID [Concomitant]
  8. ACTONEL [Concomitant]
  9. WELLBUTRIN [Concomitant]

REACTIONS (9)
  - ATRIAL FIBRILLATION [None]
  - BONE PAIN [None]
  - DEPRESSION [None]
  - DRY MOUTH [None]
  - DYSPHONIA [None]
  - EMPHYSEMA [None]
  - HERPES SIMPLEX [None]
  - PAIN [None]
  - PAIN IN EXTREMITY [None]
